FAERS Safety Report 23466904 (Version 2)
Quarter: 2024Q1

REPORT INFORMATION
  Report Type: Spontaneous
  Country: US (occurrence: US)
  Receive Date: 20240201
  Receipt Date: 20240217
  Transmission Date: 20240410
  Serious: Yes (Hospitalization, Other)
  Sender: FDA-Public Use
  Company Number: US-TEVA-VS-3149363

PATIENT
  Age: 68 Year
  Sex: Male

DRUGS (6)
  1. CISPLATIN [Suspect]
     Active Substance: CISPLATIN
     Indication: Biphasic mesothelioma
     Route: 065
     Dates: start: 2022, end: 2022
  2. PEMETREXED [Suspect]
     Active Substance: PEMETREXED
     Indication: Biphasic mesothelioma
     Route: 065
  3. GEMCITABINE [Suspect]
     Active Substance: GEMCITABINE
     Indication: Biphasic mesothelioma
     Route: 065
     Dates: start: 2022, end: 2022
  4. IPILIMUMAB [Suspect]
     Active Substance: IPILIMUMAB
     Indication: Biphasic mesothelioma
     Dosage: 63MG/180MG FOR 2 CYCLES
     Route: 065
     Dates: start: 202208, end: 2022
  5. VINORELBINE [Suspect]
     Active Substance: VINORELBINE TARTRATE
     Indication: Biphasic mesothelioma
     Route: 065
  6. NIVOLUMAB [Suspect]
     Active Substance: NIVOLUMAB

REACTIONS (2)
  - Drug ineffective [Unknown]
  - Drug eruption [Recovered/Resolved]

NARRATIVE: CASE EVENT DATE: 20220101
